FAERS Safety Report 18487248 (Version 1)
Quarter: 2020Q4

REPORT INFORMATION
  Report Type: Spontaneous
  Country: US (occurrence: US)
  Receive Date: 20201110
  Receipt Date: 20201110
  Transmission Date: 20210114
  Serious: Yes (Other)
  Sender: FDA-Public Use
  Company Number: US-ASTRAZENECA-2020SF44261

PATIENT
  Age: 62 Year
  Sex: Male
  Weight: 86 kg

DRUGS (14)
  1. VITAMIN D3 [Concomitant]
     Active Substance: CHOLECALCIFEROL
  2. ATENOLOL. [Concomitant]
     Active Substance: ATENOLOL
     Dosage: 100.0MG UNKNOWN
  3. CITALOPRAM [Concomitant]
     Active Substance: CITALOPRAM HYDROBROMIDE
     Dosage: 10.0MG UNKNOWN
  4. LOSARTAN. [Concomitant]
     Active Substance: LOSARTAN
     Dosage: 100.0MG UNKNOWN
  5. XTANDI [Suspect]
     Active Substance: ENZALUTAMIDE
     Indication: PROSTATE CANCER
     Route: 048
     Dates: start: 20200102, end: 20200302
  6. BIOTIN [Concomitant]
     Active Substance: BIOTIN
  7. VITAMIN C [Concomitant]
     Active Substance: ASCORBIC ACID
     Dosage: 1000.0MG UNKNOWN
  8. GABAPENTIN. [Concomitant]
     Active Substance: GABAPENTIN
  9. IRON 100 PLUS [Concomitant]
     Active Substance: ASCORBIC ACID\CYANOCOBALAMIN\FOLIC ACID\IRON
  10. LYNPARZA [Suspect]
     Active Substance: OLAPARIB
     Indication: PRODUCT USED FOR UNKNOWN INDICATION
     Route: 048
  11. GLUCOSAMINE + CHONDROITIN COMPLEX [Concomitant]
     Active Substance: CHONDROITIN SULFATE (BOVINE)\GLUCOSAMINE HYDROCHLORIDE
  12. ATORVASTATIN [Suspect]
     Active Substance: ATORVASTATIN
     Indication: PRODUCT USED FOR UNKNOWN INDICATION
     Dosage: 10.0MG UNKNOWN
     Route: 065
  13. MAGNESIUM [Concomitant]
     Active Substance: MAGNESIUM
     Dosage: 100.0MG UNKNOWN
  14. LYSINE [Concomitant]
     Active Substance: LYSINE
     Dosage: 1000.0MG UNKNOWN

REACTIONS (5)
  - Vision blurred [Unknown]
  - Fatigue [Not Recovered/Not Resolved]
  - Prostatic specific antigen increased [Recovered/Resolved]
  - Headache [Unknown]
  - Dizziness [Recovering/Resolving]

NARRATIVE: CASE EVENT DATE: 202001
